FAERS Safety Report 26061961 (Version 1)
Quarter: 2025Q4

REPORT INFORMATION
  Report Type: Spontaneous
  Country: KE (occurrence: KE)
  Receive Date: 20251119
  Receipt Date: 20251119
  Transmission Date: 20260118
  Serious: Yes (Life-Threatening, Hospitalization, Other)
  Sender: ALKEM
  Company Number: KE-ALKEM LABORATORIES LIMITED-US-ALKEM-2025-07616

PATIENT
  Age: 48 Year
  Sex: Female

DRUGS (9)
  1. CHOLESTYRAMINE [Suspect]
     Active Substance: CHOLESTYRAMINE
     Indication: Pruritus
     Dosage: 4 GRAM, BID
     Route: 065
  2. CHOLESTYRAMINE [Suspect]
     Active Substance: CHOLESTYRAMINE
     Indication: Cholestasis
  3. AZITHROMYCIN [Suspect]
     Active Substance: AZITHROMYCIN
     Indication: COVID-19 pneumonia
     Dosage: 500 MILLIGRAM, QD
     Route: 065
  4. PROMETHAZINE [Suspect]
     Active Substance: PROMETHAZINE HYDROCHLORIDE
     Indication: Pruritus
     Dosage: 12.5 MILLIGRAM, HS (NOCTE)
     Route: 065
  5. PROMETHAZINE [Suspect]
     Active Substance: PROMETHAZINE HYDROCHLORIDE
     Indication: Cholestasis
  6. BEZAFIBRATE [Suspect]
     Active Substance: BEZAFIBRATE
     Indication: Pruritus
     Dosage: 400 MILLIGRAM, QD
     Route: 065
  7. BEZAFIBRATE [Suspect]
     Active Substance: BEZAFIBRATE
     Indication: Cholestasis
  8. URSODIOL [Suspect]
     Active Substance: URSODIOL
     Indication: Pruritus
     Dosage: 300 MILLIGRAM, BID
     Route: 065
  9. URSODIOL [Suspect]
     Active Substance: URSODIOL
     Indication: Cholestasis

REACTIONS (5)
  - Cholestasis [Recovering/Resolving]
  - Pruritus [Recovering/Resolving]
  - Intentional product misuse [Unknown]
  - Prescription drug used without a prescription [Unknown]
  - Therapy non-responder [Unknown]
